FAERS Safety Report 17340372 (Version 1)
Quarter: 2020Q1

REPORT INFORMATION
  Report Type: Spontaneous
  Country: US (occurrence: US)
  Receive Date: 20200129
  Receipt Date: 20200129
  Transmission Date: 20200409
  Serious: No
  Sender: FDA-Public Use
  Company Number: US-EPIHEALTH-2019-US-023267

PATIENT
  Sex: Female

DRUGS (1)
  1. RHOFADE [Suspect]
     Active Substance: OXYMETAZOLINE HYDROCHLORIDE
     Indication: ROSACEA
     Dosage: 1 DOSAGE FORM
     Route: 061
     Dates: start: 20191014, end: 20191016

REACTIONS (3)
  - Application site paraesthesia [Not Recovered/Not Resolved]
  - Application site dermatitis [Not Recovered/Not Resolved]
  - Skin tightness [Not Recovered/Not Resolved]

NARRATIVE: CASE EVENT DATE: 20191017
